FAERS Safety Report 8603650-1 (Version None)
Quarter: 2012Q3

REPORT INFORMATION
  Report Type: 
  Country: None (occurrence: None)
  Receive Date: 20120817
  Receipt Date: 20120814
  Transmission Date: 20120928
  Serious: No
  Sender: FDA-Public Use
  Company Number: US-BAYER-2012-084105

PATIENT
  Age: 51 Year
  Sex: Female

DRUGS (1)
  1. GADAVIST [Suspect]
     Indication: SCAN
     Dosage: 10 ML, UNK
     Dates: start: 20120814, end: 20120814

REACTIONS (1)
  - NAUSEA [None]
